FAERS Safety Report 7597122-3 (Version None)
Quarter: 2011Q3

REPORT INFORMATION
  Report Type: 
  Country: None (occurrence: None)
  Receive Date: 20110708
  Receipt Date: 20110706
  Transmission Date: 20111222
  Serious: No
  Sender: FDA-Public Use
  Company Number: US-PFIZER INC-2011153223

PATIENT
  Sex: Male
  Weight: 90.703 kg

DRUGS (4)
  1. SERTRALINE HYDROCHLORIDE [Suspect]
     Indication: DEPRESSION
     Dosage: 100 MG, DAILY
     Route: 048
     Dates: start: 19940101
  2. SERTRALINE HYDROCHLORIDE [Suspect]
     Dosage: 150 MG, DAILY
     Route: 048
  3. IMITREX [Concomitant]
     Indication: MIGRAINE
     Dosage: UNK
     Route: 048
  4. SERTRALINE HYDROCHLORIDE [Suspect]
     Dosage: UNK, DAILY
     Route: 048
     Dates: end: 20110101

REACTIONS (2)
  - FATIGUE [None]
  - WEIGHT INCREASED [None]
